FAERS Safety Report 5246491-8 (Version None)
Quarter: 2007Q1

REPORT INFORMATION
  Report Type: 
  Country: None (occurrence: None)
  Receive Date: 20070226
  Receipt Date: 20070216
  Transmission Date: 20070707
  Serious: Yes (Other)
  Sender: FDA-Public Use
  Company Number: US-BRISTOL-MYERS SQUIBB COMPANY-13680830

PATIENT

DRUGS (1)
  1. AMPHOTERICIN B [Suspect]
     Indication: SYSTEMIC MYCOSIS

REACTIONS (1)
  - NEPHROGENIC DIABETES INSIPIDUS [None]
